FAERS Safety Report 9483074 (Version 1)
Quarter: 2013Q3

REPORT INFORMATION
  Report Type: Spontaneous
  Country: US (occurrence: US)
  Receive Date: 20130828
  Receipt Date: 20130828
  Transmission Date: 20140515
  Serious: Yes (Hospitalization, Other)
  Sender: FDA-Public Use
  Company Number: US-AMGEN-US082469

PATIENT
  Age: 68 Year
  Sex: Female

DRUGS (7)
  1. ENBREL [Suspect]
     Indication: RHEUMATOID ARTHRITIS
     Dosage: 25 MG, 2 TIMES/WK
     Route: 058
     Dates: start: 19991129, end: 200312
  2. DIGOXIN [Concomitant]
     Dosage: 2.5 MG, QD
  3. ESOMEPRAZOLE MAGNESIUM [Concomitant]
     Dosage: 40 MG, QD
  4. PREDNISONE [Concomitant]
     Dosage: UNK UNK, QD
  5. FUROSEMIDE [Concomitant]
     Dosage: 20 MG, UNK
  6. METOPROLOL SUCCINATE [Concomitant]
  7. WARFARIN SODIUM [Concomitant]

REACTIONS (4)
  - Squamous cell carcinoma [Unknown]
  - Cardiac fibrillation [Unknown]
  - Bradycardia [Unknown]
  - Rheumatoid nodule [Unknown]
